FAERS Safety Report 7046242-0 (Version None)
Quarter: 2010Q4

REPORT INFORMATION
  Report Type: 
  Country: None (occurrence: None)
  Receive Date: 20101014
  Receipt Date: 20101011
  Transmission Date: 20110411
  Serious: Yes (Life-Threatening, Hospitalization, Disabling, Other)
  Sender: FDA-Public Use
  Company Number: A0882087A

PATIENT
  Age: 59 Year
  Sex: Male

DRUGS (3)
  1. REQUIP [Suspect]
     Indication: PARKINSON'S DISEASE
     Dosage: 4MG THREE TIMES PER DAY
     Route: 048
     Dates: start: 20080401
  2. AZILECT [Concomitant]
     Dosage: 1MG PER DAY
  3. SINEMET [Concomitant]
     Route: 048

REACTIONS (7)
  - ALTERED STATE OF CONSCIOUSNESS [None]
  - FATIGUE [None]
  - LOSS OF CONSCIOUSNESS [None]
  - POOR QUALITY SLEEP [None]
  - ROAD TRAFFIC ACCIDENT [None]
  - SOMNOLENCE [None]
  - SUDDEN ONSET OF SLEEP [None]
